FAERS Safety Report 4967629-3 (Version None)
Quarter: 2006Q2

REPORT INFORMATION
  Report Type: 
  Country: None (occurrence: None)
  Receive Date: 20060407
  Receipt Date: 20060407
  Transmission Date: 20061013
  Serious: Yes (Hospitalization)
  Sender: FDA-Public Use
  Company Number: None

PATIENT
  Sex: Female
  Weight: 65.32 kg

DRUGS (3)
  1. CARBOPLATIN [Suspect]
     Indication: LUNG SQUAMOUS CELL CARCINOMA STAGE UNSPECIFIED
     Dosage: 930 MG
     Dates: start: 20060320, end: 20060320
  2. ERBITUX [Suspect]
     Dosage: 835 MG
     Dates: start: 20060320, end: 20060327
  3. ALIMTA [Suspect]
     Dosage: 835 MG
     Dates: start: 20060320, end: 20060320

REACTIONS (2)
  - FEBRILE NEUTROPENIA [None]
  - THROMBOCYTOPENIA [None]
